FAERS Safety Report 11373245 (Version 1)
Quarter: 2015Q3

REPORT INFORMATION
  Report Type: Spontaneous
  Country: US (occurrence: US)
  Receive Date: 20150811
  Receipt Date: 20150811
  Transmission Date: 20151125
  Serious: No
  Sender: FDA-Public Use
  Company Number: US-ELI_LILLY_AND_COMPANY-US201208007104

PATIENT

DRUGS (5)
  1. ADCIRCA [Suspect]
     Active Substance: TADALAFIL
     Indication: PULMONARY HYPERTENSION
     Dosage: 40 MG, QD
     Dates: start: 20120806, end: 20120808
  2. LETAIRIS [Concomitant]
     Active Substance: AMBRISENTAN
  3. DIURETICS [Concomitant]
     Active Substance: UNSPECIFIED INGREDIENT
  4. POTASSIUM [Concomitant]
     Active Substance: POTASSIUM
  5. CALCIUM [Concomitant]
     Active Substance: CALCIUM

REACTIONS (2)
  - Eye swelling [Unknown]
  - Swelling face [Unknown]
